FAERS Safety Report 25994846 (Version 1)
Quarter: 2025Q4

REPORT INFORMATION
  Report Type: Report from Study
  Country: PK (occurrence: PK)
  Receive Date: 20251104
  Receipt Date: 20251104
  Transmission Date: 20260118
  Serious: Yes (Other)
  Sender: ROCHE
  Company Number: PK-ROCHE-10000424915

PATIENT
  Age: 44 Year
  Sex: Female

DRUGS (1)
  1. RITUXIMAB [Suspect]
     Active Substance: RITUXIMAB
     Indication: Polycythaemia vera
     Route: 042
     Dates: start: 20251028

REACTIONS (1)
  - Polycythaemia vera [Unknown]

NARRATIVE: CASE EVENT DATE: 20251028
